FAERS Safety Report 25481698 (Version 2)
Quarter: 2025Q4

REPORT INFORMATION
  Report Type: Spontaneous
  Country: US (occurrence: US)
  Receive Date: 20250626
  Receipt Date: 20251223
  Transmission Date: 20260117
  Serious: No
  Sender: ITALFARMACO SPA
  Company Number: US-ITALFARMACO SPA-2179420

PATIENT
  Age: 22 Year
  Sex: Male
  Weight: 45.36 kg

DRUGS (18)
  1. DUVYZAT [Suspect]
     Active Substance: GIVINOSTAT
     Indication: Duchenne muscular dystrophy
     Route: 061
     Dates: start: 20250421
  2. AZELASTINE HYDROCHLORIDE [Concomitant]
     Active Substance: AZELASTINE HYDROCHLORIDE
  3. SOLU-CORTEF [Concomitant]
     Active Substance: HYDROCORTISONE SODIUM SUCCINATE
  4. ZYRTEC [Concomitant]
     Active Substance: CETIRIZINE HYDROCHLORIDE
  5. ZOLEDRONIC ACID [Concomitant]
     Active Substance: ZOLEDRONIC ACID
  6. TESTOSTERONE [Concomitant]
     Active Substance: TESTOSTERONE
  7. NIZORAL A-D [Concomitant]
     Active Substance: KETOCONAZOLE
  8. MUPIROCIN [Concomitant]
     Active Substance: MUPIROCIN
  9. LISINOPRIL [Concomitant]
     Active Substance: LISINOPRIL
  10. LACTASE [Concomitant]
     Active Substance: LACTASE
  11. FLONASE ALLERGY RELIEF [Concomitant]
     Active Substance: FLUTICASONE PROPIONATE
  12. FISH OIL [Concomitant]
     Active Substance: FISH OIL
  13. FAMOTIDINE [Concomitant]
     Active Substance: FAMOTIDINE
  14. EMFLAZA [Concomitant]
     Active Substance: DEFLAZACORT
  15. CLINDAMYCIN [Concomitant]
     Active Substance: CLINDAMYCIN
     Route: 048
  16. CITRUCEL [Concomitant]
     Active Substance: METHYLCELLULOSE (4000 CPS)
  17. CARVEDILOL [Concomitant]
     Active Substance: CARVEDILOL
  18. BENZAMYCIN [Concomitant]
     Active Substance: BENZOYL PEROXIDE\ERYTHROMYCIN

REACTIONS (4)
  - Platelet count decreased [Not Recovered/Not Resolved]
  - Rash [Not Recovered/Not Resolved]
  - Contusion [Not Recovered/Not Resolved]
  - Blood triglycerides increased [Not Recovered/Not Resolved]
